FAERS Safety Report 4606507-6 (Version None)
Quarter: 2005Q2

REPORT INFORMATION
  Report Type: 
  Country: None (occurrence: None)
  Receive Date: 20050223
  Receipt Date: 20041112
  Transmission Date: 20051028
  Serious: Yes (Disabling)
  Sender: FDA-Public Use
  Company Number: WAES   0201USA00111

PATIENT
  Sex: Female

DRUGS (9)
  1. ZOCOR [Suspect]
     Indication: HYPERCHOLESTEROLAEMIA
     Dosage: DAILY/PO
     Route: 048
     Dates: start: 20011101
  2. ZOCOR [Suspect]
     Indication: HYPERCHOLESTEROLAEMIA
     Dosage: PO
     Route: 048
     Dates: start: 20030101, end: 20030701
  3. ACEON [Concomitant]
  4. CLARITIN [Concomitant]
  5. EVISTA [Concomitant]
  6. NASACORT [Concomitant]
  7. ADEMETIONINE [Concomitant]
  8. GLUCOSAMINE [Concomitant]
  9. VITAMINS (UNSPECIFIED) [Concomitant]

REACTIONS (3)
  - MEDICATION ERROR [None]
  - MUSCLE SPASMS [None]
  - MYALGIA [None]
